FAERS Safety Report 9816562 (Version 5)
Quarter: 2015Q2

REPORT INFORMATION
  Report Type: Spontaneous
  Country: US (occurrence: US)
  Receive Date: 20140114
  Receipt Date: 20150526
  Transmission Date: 20150821
  Serious: Yes (Disabling)
  Sender: FDA-Public Use
  Company Number: US-009507513-1401USA001374

PATIENT
  Sex: Male
  Weight: 101.59 kg

DRUGS (1)
  1. PROPECIA [Suspect]
     Active Substance: FINASTERIDE
     Indication: ANDROGENETIC ALOPECIA
     Dosage: 1 MG, QD
     Route: 048
     Dates: start: 20091104, end: 20101108

REACTIONS (49)
  - Secondary hypogonadism [Unknown]
  - Myocarditis [Unknown]
  - Rhinitis allergic [Unknown]
  - Keratosis pilaris [Unknown]
  - Hypertension [Unknown]
  - Tonsillectomy [Unknown]
  - Hypoaesthesia [Recovered/Resolved]
  - Loss of libido [Unknown]
  - Haematospermia [Unknown]
  - Blood cortisol decreased [Unknown]
  - Acute sinusitis [Unknown]
  - Fatty acid deficiency [Unknown]
  - Chest discomfort [Unknown]
  - Urinary tract infection [Unknown]
  - Sexual dysfunction [Not Recovered/Not Resolved]
  - Drug ineffective [Unknown]
  - Psychosexual disorder [Unknown]
  - Anorgasmia [Unknown]
  - Acne [Unknown]
  - Benign neoplasm of skin [Unknown]
  - Vitamin D deficiency [Unknown]
  - Gastrooesophageal reflux disease [Unknown]
  - Lipids increased [Unknown]
  - Onychomycosis [Unknown]
  - Penile size reduced [Not Recovered/Not Resolved]
  - Bronchitis [Unknown]
  - Onychomycosis [Unknown]
  - Malaise [Unknown]
  - Gastroenteritis [Unknown]
  - Adjustment disorder with mixed anxiety and depressed mood [Not Recovered/Not Resolved]
  - Attention deficit/hyperactivity disorder [Not Recovered/Not Resolved]
  - Fatigue [Not Recovered/Not Resolved]
  - Palpitations [Unknown]
  - Folate deficiency [Unknown]
  - Orgasm abnormal [Unknown]
  - Pharyngitis [Unknown]
  - Tourette^s disorder [Unknown]
  - Mitral valve prolapse [Unknown]
  - Paraesthesia [Recovered/Resolved]
  - Pain [Unknown]
  - Chondropathy [Unknown]
  - Organic erectile dysfunction [Not Recovered/Not Resolved]
  - Ingrowing nail [Unknown]
  - Dyspepsia [Unknown]
  - Insomnia [Not Recovered/Not Resolved]
  - Chest pain [Unknown]
  - Weight increased [Unknown]
  - Testicular failure [Unknown]
  - Obsessive-compulsive disorder [Unknown]

NARRATIVE: CASE EVENT DATE: 2010
